FAERS Safety Report 7605616-7 (Version None)
Quarter: 2011Q3

REPORT INFORMATION
  Report Type: 
  Country: None (occurrence: None)
  Receive Date: 20110712
  Receipt Date: 20110712
  Transmission Date: 20111222
  Serious: Yes (Hospitalization)
  Sender: FDA-Public Use
  Company Number: None

PATIENT
  Age: 24 Year
  Sex: Male
  Weight: 97.7 kg

DRUGS (2)
  1. PIPERACILLIN AND TAZOBACTAM [Suspect]
     Indication: INFECTION
     Dosage: 4.5 GM QID IV
     Route: 042
     Dates: start: 20110423, end: 20110425
  2. VANCOMYCIN [Suspect]
     Indication: INFECTION
     Dosage: 1500 MG BID IV
     Route: 042
     Dates: start: 20110423, end: 20110426

REACTIONS (4)
  - BLOOD CREATININE INCREASED [None]
  - NEPHROPATHY TOXIC [None]
  - HAEMODIALYSIS [None]
  - TUBULOINTERSTITIAL NEPHRITIS [None]
